FAERS Safety Report 15089762 (Version 2)
Quarter: 2018Q2

REPORT INFORMATION
  Report Type: Spontaneous
  Country: US (occurrence: US)
  Receive Date: 20180629
  Receipt Date: 20180629
  Transmission Date: 20180711
  Serious: Yes (Death, Other)
  Sender: FDA-Public Use
  Company Number: PHHY2018US027967

PATIENT
  Age: 59 Year
  Sex: Male

DRUGS (1)
  1. CICLOSPORIN [Suspect]
     Active Substance: CYCLOSPORINE
     Indication: LIVER TRANSPLANT
     Route: 065

REACTIONS (5)
  - Mental status changes [Fatal]
  - Osmotic demyelination syndrome [Fatal]
  - Unresponsive to stimuli [Fatal]
  - Respiratory distress [Unknown]
  - Depressed level of consciousness [Fatal]
